FAERS Safety Report 23390032 (Version 7)
Quarter: 2024Q1

REPORT INFORMATION
  Report Type: Report from Study
  Country: NL (occurrence: NL)
  Receive Date: 20240111
  Receipt Date: 20240307
  Transmission Date: 20240410
  Serious: Yes (Death, Other)
  Sender: FDA-Public Use
  Company Number: NL-ABBVIE-5576870

PATIENT
  Age: 79 Year
  Sex: Male

DRUGS (15)
  1. CARBIDOPA\LEVODOPA [Suspect]
     Active Substance: CARBIDOPA\LEVODOPA
     Indication: Parkinson^s disease
     Dosage: MD 2.8 ML  REMAINS AT 16 HOURS
     Route: 050
     Dates: start: 20230908, end: 20230922
  2. CARBIDOPA\LEVODOPA [Suspect]
     Active Substance: CARBIDOPA\LEVODOPA
     Dosage: MD 0.0 ML; CD 3.7 ML/H; ED 1.6 ML,REMAINS AT 16 HOURS
     Route: 050
     Dates: start: 20240105, end: 20240220
  3. CARBIDOPA\LEVODOPA [Suspect]
     Active Substance: CARBIDOPA\LEVODOPA
     Dosage: MD 3.0 ML; CD 3.7 ML/H; ED 1.6 ML REMAINS AT 24 HOURS
     Route: 050
     Dates: start: 20231108, end: 20240105
  4. CARBIDOPA\LEVODOPA [Suspect]
     Active Substance: CARBIDOPA\LEVODOPA
     Route: 050
     Dates: start: 20220222
  5. CARBIDOPA\LEVODOPA [Suspect]
     Active Substance: CARBIDOPA\LEVODOPA
     Dosage: CD 3.5 ML/H REMAINS AT 24 HOURS
     Route: 050
     Dates: start: 20231030, end: 20231102
  6. CARBIDOPA\LEVODOPA [Suspect]
     Active Substance: CARBIDOPA\LEVODOPA
     Dosage: MD 0.0 ML; CD 3.4 ML/H; ED 1.7 ML; END 1.20 ML; CND 2.8 ML/H, REMAINS AT 24 HOURS
     Route: 050
     Dates: start: 20240220
  7. CARBIDOPA\LEVODOPA [Suspect]
     Active Substance: CARBIDOPA\LEVODOPA
     Dosage: MD 3.0 ML; CD 3.7 ML/H; ED 1.7 ML REMAINS AT 16 HOURS
     Route: 050
     Dates: start: 20231106, end: 20231108
  8. CARBIDOPA\LEVODOPA [Suspect]
     Active Substance: CARBIDOPA\LEVODOPA
     Route: 050
  9. CARBIDOPA\LEVODOPA [Suspect]
     Active Substance: CARBIDOPA\LEVODOPA
     Route: 050
  10. CARBIDOPA\LEVODOPA [Suspect]
     Active Substance: CARBIDOPA\LEVODOPA
     Dosage: MD 1.0 ML; CD 3.6 ML/H; ED 2.2 ML; END 1.2 ML; CND 3.0 ML/H?REMAINS AT 24 HOURS
     Route: 050
     Dates: start: 20230922, end: 20231030
  11. CARBIDOPA\LEVODOPA [Suspect]
     Active Substance: CARBIDOPA\LEVODOPA
     Dosage: ED 1.7 ML REMAINS AT 16 HOURS
     Route: 050
     Dates: start: 20231102, end: 20231106
  12. POLYETHYLENE GLYCOLS [Concomitant]
     Active Substance: POLYETHYLENE GLYCOLS
     Indication: Gastrointestinal motility disorder
  13. NEUPRO [Concomitant]
     Active Substance: ROTIGOTINE
     Indication: Product used for unknown indication
     Dosage: PLASTER
  14. LEVODOPA/CARBIDOPA PCH RETARD [Concomitant]
     Indication: Product used for unknown indication
     Dosage: FORM STRENGTH: 250 MILLIGRAM
  15. CARBIDOPA AND LEVODOPA [Concomitant]
     Active Substance: CARBIDOPA\LEVODOPA
     Indication: Product used for unknown indication
     Dosage: 1.5 AND 2 PIECES?FORM STRENGTH: 125 MILLIGRAM

REACTIONS (25)
  - Death [Fatal]
  - Rehabilitation therapy [Recovered/Resolved]
  - Dystonia [Not Recovered/Not Resolved]
  - Hyporesponsive to stimuli [Unknown]
  - Overdose [Not Recovered/Not Resolved]
  - Muscle spasms [Not Recovered/Not Resolved]
  - Diarrhoea [Not Recovered/Not Resolved]
  - Intentional product misuse [Not Recovered/Not Resolved]
  - On and off phenomenon [Unknown]
  - Hyperhidrosis [Not Recovered/Not Resolved]
  - Hypophagia [Not Recovered/Not Resolved]
  - Constipation [Unknown]
  - Malaise [Not Recovered/Not Resolved]
  - Initial insomnia [Recovering/Resolving]
  - Dyskinesia [Not Recovered/Not Resolved]
  - Weight increased [Not Recovered/Not Resolved]
  - Oxygen saturation decreased [Not Recovered/Not Resolved]
  - Living in residential institution [Unknown]
  - Hyperkinesia [Not Recovered/Not Resolved]
  - Device use issue [Not Recovered/Not Resolved]
  - Overdose [Recovered/Resolved]
  - Depressed level of consciousness [Not Recovered/Not Resolved]
  - Asthenia [Not Recovered/Not Resolved]
  - Device issue [Unknown]
  - Cognitive disorder [Unknown]

NARRATIVE: CASE EVENT DATE: 20240101
